FAERS Safety Report 16729977 (Version 1)
Quarter: 2019Q3

REPORT INFORMATION
  Report Type: Spontaneous
  Country: DE (occurrence: DE)
  Receive Date: 20190822
  Receipt Date: 20190822
  Transmission Date: 20191005
  Serious: Yes (Hospitalization)
  Sender: FDA-Public Use
  Company Number: DE-TEVA-2019-DE-1094107

PATIENT
  Age: 76 Year
  Sex: Female
  Weight: 56 kg

DRUGS (13)
  1. AMLODIPIN [Concomitant]
     Active Substance: AMLODIPINE BESYLATE
     Dosage: 5 MG, 1-0-0-0, TABLET
     Route: 048
  2. METOPROLOL. [Concomitant]
     Active Substance: METOPROLOL
     Dosage: 95 MG, 0.5-0-0.5-0, TABLET
     Route: 048
  3. ELIQUIS [Concomitant]
     Active Substance: APIXABAN
     Dosage: 2.5 MG, 1-0-1-0, TABLET
     Route: 048
  4. HYDROCHLOROTHIAZID [Concomitant]
     Active Substance: HYDROCHLOROTHIAZIDE
     Dosage: 25 MG, 2-0-0-0, TABLET
     Route: 048
  5. MYCOPHENOLAT [Suspect]
     Active Substance: MYCOPHENOLATE MOFETIL
     Dosage: 500 MG, 1-0-1-0, TABLET
     Route: 048
  6. RAPAMUNE [Suspect]
     Active Substance: SIROLIMUS
     Dosage: 1 MG, 1-0-0-0, TABLET
     Route: 048
  7. L-THYROXIN 50 [Concomitant]
     Active Substance: LEVOTHYROXINE SODIUM
     Dosage: 75 MICROGRAM, 1-0-0-0, TABLET
     Route: 048
  8. TORASEMID [Concomitant]
     Active Substance: TORSEMIDE
     Dosage: 10 MG, 2-1-0-0, TABLET
     Route: 048
  9. RAMIPRIL. [Concomitant]
     Active Substance: RAMIPRIL
     Dosage: 5 MG, 0.5-0-0-0, TABLET
     Route: 048
  10. ERYTHROPOIETIN [Concomitant]
     Active Substance: ERYTHROPOIETIN
     Dosage: 60 MICROGRAM / WEEK, EVERY 2 WEEKS, SOLUTION FOR INJECTION / INFUSION
     Route: 058
  11. PREDNISOLONE. [Suspect]
     Active Substance: PREDNISOLONE
     Dosage: 1 MG, 1-0-1-0, TABLET
     Route: 048
  12. VANCOMYCIN [Concomitant]
     Active Substance: VANCOMYCIN
     Dosage: 250 MG, 1-0-0-0, TABLET
     Route: 048
  13. BICANORM [Concomitant]
     Active Substance: SODIUM BICARBONATE
     Dosage: 1 G, 1-0-1-0, TABLET
     Route: 048

REACTIONS (2)
  - Erythema [Unknown]
  - Peripheral swelling [Unknown]
